FAERS Safety Report 9189817 (Version 3)
Quarter: 2013Q4

REPORT INFORMATION
  Report Type: Spontaneous
  Country: US (occurrence: None)
  Receive Date: 20120703
  Receipt Date: 20131226
  Transmission Date: 20140711
  Serious: Yes (Other)
  Sender: FDA-Public Use
  Company Number: PHEH2012US008060

PATIENT
  Age: 47 Year
  Sex: Female
  Weight: 136.1 kg

DRUGS (8)
  1. GILENYA (FTY) CAPSULE, 0.5MG [Suspect]
     Indication: MULTIPLE SCLEROSIS
     Route: 048
     Dates: start: 20120410
  2. LISINOPRIL (LISINOPRIL) TABLET, 10MG [Concomitant]
  3. LEXAPRO (ESCITALOPRAM OXALATE) TABLET, 10 MG [Concomitant]
  4. PROVIGIL (MODAFINIL) TABLET, 100 MG [Concomitant]
  5. ADVAIR DISKUS (FLUTICASONE PROPIONATE SALMETEROL XINAFOATE) [Concomitant]
  6. NASONEX (MOMETASONE FUROATE) [Concomitant]
  7. TYLENOL SINUS (PARACETAMOL, PSEUOEPHEDRINE HYDROCHLORIDE) [Concomitant]
  8. MULTIVITAMINS (ASCORBIC ACID, ERGOCALCIFEROL, FOLIC ACID, NICOTINAMIDE, PANTHENOL, RETINOL, RIBOFLAVIN, THIAMINE HYDROCHLORIDE) TABLET [Concomitant]

REACTIONS (3)
  - Pyrexia [None]
  - Flushing [None]
  - Paraesthesia [None]
